FAERS Safety Report 10267907 (Version 1)
Quarter: 2014Q2

REPORT INFORMATION
  Report Type: Report from Study
  Country: JP (occurrence: JP)
  Receive Date: 20140630
  Receipt Date: 20140630
  Transmission Date: 20141212
  Serious: Yes (Hospitalization)
  Sender: FDA-Public Use
  Company Number: JP-AMGEN INC.-JPNCT2014048595

PATIENT
  Age: 72 Year
  Sex: Female
  Weight: 42 kg

DRUGS (19)
  1. ROMIPLOSTIM - KHK [Suspect]
     Indication: IMMUNE THROMBOCYTOPENIC PURPURA
     Dosage: 6.25 MUG/KG, QWK
     Route: 058
     Dates: start: 20130809
  2. PREDONINE                          /00016201/ [Concomitant]
     Indication: IMMUNE THROMBOCYTOPENIC PURPURA
     Dosage: 25 MG, UNK
     Route: 048
     Dates: start: 20130705, end: 20130910
  3. REVOLADE [Concomitant]
     Indication: IMMUNE THROMBOCYTOPENIC PURPURA
     Dosage: 50 MG, UNK
     Route: 048
     Dates: start: 20120501, end: 20131028
  4. ADONA                              /00056903/ [Concomitant]
     Indication: PROPHYLAXIS
     Dosage: UNK
     Route: 048
  5. CRAVIT [Concomitant]
     Indication: PROPHYLAXIS
     Dosage: UNK
     Route: 048
  6. GOODMIN [Concomitant]
     Indication: INSOMNIA
     Dosage: UNK
     Route: 048
  7. GLYCYRON                           /00466401/ [Concomitant]
     Indication: HEPATIC FUNCTION ABNORMAL
     Dosage: UNK
     Route: 048
  8. CINAL [Concomitant]
     Indication: PROPHYLAXIS
     Dosage: UNK
     Route: 048
  9. CEPHARANTHINE [Concomitant]
     Indication: PROPHYLAXIS
     Dosage: UNK
     Route: 048
  10. THYRADIN S [Concomitant]
     Indication: HYPOTHYROIDISM
     Dosage: UNK
     Route: 048
  11. TRANSAMIN [Concomitant]
     Indication: PROPHYLAXIS
     Dosage: UNK
     Route: 048
  12. NESINA [Concomitant]
     Indication: DIABETES MELLITUS
     Dosage: UNK
     Route: 048
  13. NOVORAPID MIX [Concomitant]
     Indication: DIABETES MELLITUS
     Dosage: UNK
     Route: 058
  14. VALTREX [Concomitant]
     Indication: PROPHYLAXIS
     Dosage: UNK
     Route: 048
  15. BIOFERMIN                          /01617201/ [Concomitant]
     Indication: PROPHYLAXIS
     Dosage: UNK
     Route: 048
  16. PROHEPARUM [Concomitant]
     Indication: HEPATIC FUNCTION ABNORMAL
     Dosage: UNK
     Route: 048
  17. MYSLEE [Concomitant]
     Indication: INSOMNIA
     Dosage: UNK
     Route: 048
  18. LANSOPRAZOLE [Concomitant]
     Indication: PROPHYLAXIS
     Dosage: UNK UNK, QD
     Route: 048
  19. ALENDRONATE [Concomitant]
     Indication: OSTEOPOROSIS
     Dosage: UNK
     Route: 048

REACTIONS (3)
  - Dementia Alzheimer^s type [Recovering/Resolving]
  - Decreased appetite [Recovering/Resolving]
  - Anaemia [Recovering/Resolving]
